FAERS Safety Report 22224314 (Version 1)
Quarter: 2023Q2

REPORT INFORMATION
  Report Type: Spontaneous
  Country: None (occurrence: GB)
  Receive Date: 20230418
  Receipt Date: 20230418
  Transmission Date: 20230722
  Serious: Yes (Death, Hospitalization, Other)
  Sender: FDA-Public Use
  Company Number: GB-Breckenridge Pharmaceutical, Inc.-2140516

PATIENT
  Age: 81 Year
  Sex: Female

DRUGS (9)
  1. OMEPRAZOLE [Suspect]
     Active Substance: OMEPRAZOLE
     Route: 048
  2. METATONE (CALCIUM GLYCEROPHOSPHATE; ?SODIUM GLYCEROPHOSPHATE SOLUTION; [Concomitant]
  3. NOVOMIX (Insulin Aspart) [Concomitant]
  4. DOXAZOSIN [Concomitant]
     Active Substance: DOXAZOSIN MESYLATE
  5. METFORMIN [Suspect]
     Active Substance: METFORMIN HYDROCHLORIDE
  6. FUROSEMIDE [Concomitant]
     Active Substance: FUROSEMIDE
  7. SIMVASTATIN [Concomitant]
     Active Substance: SIMVASTATIN
  8. ANTI-DIARRHEAL LOPERAMIDE HCL [Concomitant]
     Active Substance: LOPERAMIDE HYDROCHLORIDE
  9. LISINOPRIL [Suspect]
     Active Substance: LISINOPRIL

REACTIONS (11)
  - Hyponatraemia [Fatal]
  - Multiple organ dysfunction syndrome [Fatal]
  - Hypertension [Fatal]
  - Pneumonia [Fatal]
  - Blood creatinine increased [Fatal]
  - Angioedema [Recovered/Resolved with Sequelae]
  - Blood urea increased [Fatal]
  - Metabolic acidosis [Fatal]
  - Ventricular dyssynchrony [Fatal]
  - Cardiac death [Fatal]
  - Death [Fatal]
